FAERS Safety Report 10838842 (Version 1)
Quarter: 2015Q1

REPORT INFORMATION
  Report Type: Spontaneous
  Country: US (occurrence: None)
  Receive Date: 20150218
  Receipt Date: 20150218
  Transmission Date: 20150721
  Serious: Yes (Hospitalization)
  Sender: FDA-Public Use
  Company Number: HYP201502-000011

PATIENT
  Age: 22 Year
  Sex: Female

DRUGS (3)
  1. RAVICTI [Suspect]
     Active Substance: GLYCEROL PHENYLBUTYRATE
     Indication: UREA CYCLE ENZYME DEFICIENCY
     Dates: start: 201404
  2. KEPPRA [Concomitant]
     Active Substance: LEVETIRACETAM
  3. ARGININE (ARGININE) [Concomitant]

REACTIONS (5)
  - Catabolic state [None]
  - Hypophagia [None]
  - Upper respiratory tract infection [None]
  - Hypokalaemia [None]
  - Encephalopathy [None]

NARRATIVE: CASE EVENT DATE: 20150202
